FAERS Safety Report 22387359 (Version 1)
Quarter: 2023Q2

REPORT INFORMATION
  Report Type: Spontaneous
  Country: IT (occurrence: IT)
  Receive Date: 20230531
  Receipt Date: 20230531
  Transmission Date: 20230721
  Serious: Yes (Other)
  Sender: FDA-Public Use
  Company Number: IT-AMGEN-ITASP2023089962

PATIENT
  Age: 7 Year
  Sex: Male
  Weight: 23.4 kg

DRUGS (18)
  1. BLINATUMOMAB [Suspect]
     Active Substance: BLINATUMOMAB
     Indication: Mature B-cell type acute leukaemia
     Dosage: THIRD LINE SYSTEMIC TREATMENT, BLINATUMOMAB, FOR 28 DAYS
     Route: 065
     Dates: start: 20230124
  2. RITUXIMAB [Suspect]
     Active Substance: RITUXIMAB
     Indication: Mature B-cell type acute leukaemia
     Dosage: FOURTH LINE SYSTEMIC TREATMENT, CYCLE R-VICI
     Route: 065
     Dates: start: 20230302, end: 20230309
  3. RITUXIMAB [Suspect]
     Active Substance: RITUXIMAB
     Dosage: SECOND LINE SYSTEMIC TREATMENT, FIRST R-ICE
     Route: 065
     Dates: start: 20221122, end: 20221207
  4. RITUXIMAB [Suspect]
     Active Substance: RITUXIMAB
     Dosage: SECOND LINE SYSTEMIC TREATMENT, SECOND R-ICE
     Route: 065
     Dates: start: 20221219, end: 20221223
  5. RITUXIMAB [Suspect]
     Active Substance: RITUXIMAB
     Dosage: FIRST LINE SYSTEMIC TREATMENT, FIRST LINE PROTOCOL: INTERB-NHL RITUXIMAB-2010, R-IT-CYVE
     Route: 065
     Dates: start: 20220809, end: 20221019
  6. RITUXIMAB [Suspect]
     Active Substance: RITUXIMAB
     Dosage: FIFTH LINE SYSTEMIC TREATMENT, CYCLE CLOVE, RITUXIMAB 375 MG/MQ, EQUAL TO 345 MG
     Route: 042
     Dates: start: 20230323
  7. PREDNISONE [Suspect]
     Active Substance: PREDNISONE
     Indication: Mature B-cell type acute leukaemia
     Dosage: 35 MG/DAY FROM AND SUBSEQUENT DECALAGE WITH INTERRUPTION ON 18/APR/2023
     Route: 065
     Dates: start: 20230328, end: 20230331
  8. DECADRON [Suspect]
     Active Substance: DEXAMETHASONE
     Indication: Mature B-cell type acute leukaemia
     Dosage: FIRST LINE SYSTEMIC TREATMENT, FIRST LINE PROTOCOL: INTERB-NHL RITUXIMAB-2010, R-IT-CYVE
     Route: 065
     Dates: start: 20220809, end: 20221019
  9. VINCRISTINE [Suspect]
     Active Substance: VINCRISTINE
     Indication: Mature B-cell type acute leukaemia
     Dosage: FOURTH LINE SYSTEMIC TREATMENT, CYCLE R-VICI
     Route: 065
     Dates: start: 20230302, end: 20230309
  10. IDARUBICIN [Suspect]
     Active Substance: IDARUBICIN
     Indication: Mature B-cell type acute leukaemia
     Dosage: FOURTH LINE SYSTEMIC TREATMENT, CYCLE R-VICI
     Route: 065
     Dates: start: 20230302, end: 20230309
  11. IFEX [Suspect]
     Active Substance: IFOSFAMIDE
     Indication: Mature B-cell type acute leukaemia
     Dosage: SECOND LINE SYSTEMIC TREATMENT, FIRST R-ICE AND SECOND R-ICE (19/DEC/2022 TO 23/DEC/2022), FOURTH LI
     Route: 065
     Dates: start: 20221122, end: 20221207
  12. CYCLOPHOSPHAMIDE [Suspect]
     Active Substance: CYCLOPHOSPHAMIDE
     Indication: Mature B-cell type acute leukaemia
     Dosage: 440 MG/MQ EQUAL TO 406 MG/DAY
     Route: 065
     Dates: start: 20230328, end: 20230401
  13. TOPOSAR [Suspect]
     Active Substance: ETOPOSIDE
     Indication: Mature B-cell type acute leukaemia
     Dosage: FIRST LINE SYSTEMIC TREATMENT, FIRST LINE PROTOCOL: INTERB-NHL RITUXIMAB-2010, R-IT-CYVE
     Route: 065
     Dates: start: 20220809, end: 20221019
  14. TOPOSAR [Suspect]
     Active Substance: ETOPOSIDE
     Dosage: ETOPOSIDE 100 MG/MQ EQUAL TO 92 MG/DAY
     Route: 065
     Dates: start: 20230328, end: 20230401
  15. TOPOSAR [Suspect]
     Active Substance: ETOPOSIDE
     Dosage: SECOND LINE SYSTEMIC TREATMENT, FIRST AND SECOND R-ICE (19/DEC/2022 TO 23/DEC/2022)
     Route: 065
     Dates: start: 20221122, end: 20221207
  16. CARBOPLATIN [Suspect]
     Active Substance: CARBOPLATIN
     Indication: Mature B-cell type acute leukaemia
     Dosage: SECOND LINE SYSTEMIC TREATMENT, FIRST AND SECOND R-ICE (19/DEC/2022 TO 23/DEC/2022) AND SUBSEQUENT D
     Route: 065
     Dates: start: 20221122, end: 20221207
  17. CYTARABINE [Suspect]
     Active Substance: CYTARABINE
     Indication: Mature B-cell type acute leukaemia
     Dosage: FIRST LINE SYSTEMIC TREATMENT, FIRST LINE PROTOCOL: INTERB-NHL RITUXIMAB-2010, R-IT-CYVE
     Route: 065
     Dates: start: 20220809, end: 20221019
  18. CLOFARABINE [Suspect]
     Active Substance: CLOFARABINE
     Indication: Mature B-cell type acute leukaemia
     Dosage: 40 MG/MQ EQUAL TO 40 MG/DAY
     Route: 065
     Dates: start: 20230328, end: 20230401

REACTIONS (4)
  - Mature B-cell type acute leukaemia [Unknown]
  - Escherichia test positive [Unknown]
  - Pyrexia [Unknown]
  - Off label use [Unknown]

NARRATIVE: CASE EVENT DATE: 20230410
